FAERS Safety Report 9174701 (Version 2)
Quarter: 2013Q2

REPORT INFORMATION
  Report Type: Report from Study
  Country: US (occurrence: US)
  Receive Date: 20130320
  Receipt Date: 20130516
  Transmission Date: 20140414
  Serious: No
  Sender: FDA-Public Use
  Company Number: US-VERTEX PHARMACEUTICALS INC.-2013-003768

PATIENT
  Sex: Female

DRUGS (6)
  1. VX-950 (TELAPREVIR) [Suspect]
     Indication: HEPATITIS C
     Dosage: 1125 MG, TID
     Route: 048
     Dates: start: 20121214
  2. VX-950 (TELAPREVIR) [Suspect]
     Dosage: 1125 MG, BID
     Route: 048
     Dates: end: 20130304
  3. PEGASYS [Suspect]
     Indication: HEPATITIS C
     Dosage: 80 ?G
     Dates: start: 20121214
  4. RIBAVIRIN [Suspect]
     Indication: HEPATITIS C
     Dosage: 400 MG, BID
     Dates: start: 20121214
  5. RIBAVIRIN [Suspect]
     Dosage: 600 MG, QD
  6. RIBAVIRIN [Suspect]
     Dosage: 400 MG, QD

REACTIONS (2)
  - Decreased appetite [Not Recovered/Not Resolved]
  - Nausea [Not Recovered/Not Resolved]
